FAERS Safety Report 10235222 (Version 1)
Quarter: 2014Q1

REPORT INFORMATION
  Report Type: Spontaneous
  Country: US (occurrence: None)
  Receive Date: 20140306
  Receipt Date: 20140306
  Transmission Date: 20141002
  Serious: Yes (Hospitalization)
  Sender: FDA-Public Use
  Company Number: 163-21880-13053761

PATIENT
  Age: 65 Year
  Sex: Female
  Weight: 91.6 kg

DRUGS (3)
  1. REVLIMID (LENALIDOMIDE) (25 MILLIGRAM, CAPSULES) [Suspect]
     Indication: PLASMA CELL MYELOMA
     Route: 048
     Dates: start: 20130430
  2. COUMADIN (WARFARIN SODIUM) [Concomitant]
  3. CALCIUM + VITAMIN D (LEKOVIT CA) [Concomitant]

REACTIONS (4)
  - Pneumonia [None]
  - Deep vein thrombosis [None]
  - Pulmonary embolism [None]
  - Local swelling [None]
